FAERS Safety Report 6884516-4 (Version None)
Quarter: 2010Q3

REPORT INFORMATION
  Report Type: 
  Country: None (occurrence: None)
  Receive Date: 20100729
  Receipt Date: 20070712
  Transmission Date: 20110219
  Serious: Yes (Hospitalization)
  Sender: FDA-Public Use
  Company Number: US-PFIZER INC-2007058513

PATIENT
  Sex: Male
  Weight: 88.5 kg

DRUGS (3)
  1. CELEBREX [Suspect]
     Dosage: 2-3 PER DAY
     Dates: start: 20000601, end: 20020401
  2. ACETAMINOPHEN [Concomitant]
  3. ADVIL LIQUI-GELS [Concomitant]

REACTIONS (1)
  - MYOCARDIAL INFARCTION [None]
